FAERS Safety Report 4815424-8 (Version None)
Quarter: 2005Q4

REPORT INFORMATION
  Report Type: 
  Country: None (occurrence: None)
  Receive Date: 20051027
  Receipt Date: 20051027
  Transmission Date: 20060501
  Serious: Yes (Death)
  Sender: FDA-Public Use
  Company Number: None

PATIENT
  Age: 58 Year

DRUGS (1)
  1. ZOLOFT [Suspect]
     Indication: INSOMNIA
     Dosage: ORAL
     Route: 048

REACTIONS (1)
  - INJURY ASPHYXIATION [None]
